FAERS Safety Report 19800014 (Version 2)
Quarter: 2021Q3

REPORT INFORMATION
  Report Type: Spontaneous
  Country: IT (occurrence: IT)
  Receive Date: 20210907
  Receipt Date: 20210913
  Transmission Date: 20211014
  Serious: Yes (Hospitalization)
  Sender: FDA-Public Use
  Company Number: IT-MYLANLABS-2021M1058372

PATIENT
  Age: 45 Year
  Sex: Male
  Weight: 95 kg

DRUGS (5)
  1. TRIATEC                            /00885601/ [Concomitant]
     Active Substance: RAMIPRIL
     Indication: HYPERTENSION
     Dosage: 2.5 MILLIGRAM
     Route: 048
  2. BRUFEN [Suspect]
     Active Substance: IBUPROFEN
     Indication: PAIN
     Dosage: 2 DOSAGE FORM, QD
     Route: 048
     Dates: start: 20210217, end: 20210217
  3. CONGESCOR [Concomitant]
     Active Substance: BISOPROLOL
     Indication: MYOCARDIAL ISCHAEMIA
     Dosage: 1.25 MILLIGRAM
     Route: 048
  4. ROCEFIN [Suspect]
     Active Substance: CEFTRIAXONE SODIUM
     Indication: ANAL ABSCESS
     Dosage: 1 GRAM, QD
     Route: 030
     Dates: start: 20210206, end: 20210218
  5. PARACETAMOL [Suspect]
     Active Substance: ACETAMINOPHEN
     Indication: PAIN
     Dosage: 500 MILLIGRAM, PRN
     Dates: start: 20210206, end: 20210218

REACTIONS (1)
  - Hepatitis acute [Recovered/Resolved with Sequelae]

NARRATIVE: CASE EVENT DATE: 20210218
